FAERS Safety Report 9910602 (Version 1)
Quarter: 2014Q1

REPORT INFORMATION
  Report Type: Spontaneous
  Country: US (occurrence: US)
  Receive Date: 20140219
  Receipt Date: 20140219
  Transmission Date: 20141002
  Serious: Yes (Other)
  Sender: FDA-Public Use
  Company Number: US-BAXTER-2014BAX007435

PATIENT
  Sex: Male

DRUGS (4)
  1. DIANEAL LOW CALCIUM [Suspect]
     Indication: RENAL FAILURE CHRONIC
     Route: 033
  2. DIANEAL LOW CALCIUM [Suspect]
     Indication: RENAL FAILURE CHRONIC
     Route: 033
  3. INVANZ [Suspect]
     Indication: INFLAMMATION
     Dates: start: 20140131
  4. INVANZ [Suspect]
     Indication: LOCALISED INFECTION

REACTIONS (5)
  - Localised infection [Recovering/Resolving]
  - Pain in extremity [Recovering/Resolving]
  - Abasia [Recovered/Resolved]
  - Hypophagia [Recovering/Resolving]
  - Nausea [Recovering/Resolving]
